FAERS Safety Report 10598995 (Version 1)
Quarter: 2014Q4

REPORT INFORMATION
  Report Type: Spontaneous
  Country: US (occurrence: US)
  Receive Date: 20141121
  Receipt Date: 20141121
  Transmission Date: 20150529
  Serious: No
  Sender: FDA-Public Use
  Company Number: US-MYLANLABS-2014S1003233

PATIENT
  Age: 82 Year
  Sex: Female
  Weight: 70.76 kg

DRUGS (2)
  1. DOXAZOSIN TABLETS, USP [Suspect]
     Active Substance: DOXAZOSIN\DOXAZOSIN MESYLATE
     Indication: BLOOD PRESSURE INCREASED
     Dosage: 4 MG,QD
     Route: 048
     Dates: start: 201312, end: 20140117
  2. CELEBREX [Concomitant]
     Active Substance: CELECOXIB
     Indication: ARTHRITIS
     Dosage: 100 MG,QD
     Route: 048

REACTIONS (3)
  - Fatigue [Not Recovered/Not Resolved]
  - Dry eye [Not Recovered/Not Resolved]
  - Dry mouth [Not Recovered/Not Resolved]

NARRATIVE: CASE EVENT DATE: 201312
